FAERS Safety Report 7547206-0 (Version None)
Quarter: 2011Q2

REPORT INFORMATION
  Report Type: 
  Country: None (occurrence: None)
  Receive Date: 20110614
  Receipt Date: 20110531
  Transmission Date: 20111010
  Serious: No
  Sender: FDA-Public Use
  Company Number: US-B.I. PHARMACEUTICALS,INC./RIDGEFIELD-2011-BP-09548BP

PATIENT
  Sex: Female

DRUGS (8)
  1. AMIODARONE HCL [Concomitant]
     Dosage: 200 MG
     Route: 048
  2. ASACOL [Concomitant]
     Indication: COLITIS MICROSCOPIC
     Dosage: 800 MG
     Route: 048
  3. TOPAMAX [Concomitant]
  4. PRADAXA [Suspect]
     Indication: HEART RATE INCREASED
     Dosage: 300 MG
     Route: 048
     Dates: start: 20110228
  5. LASIX [Concomitant]
     Indication: FLUID RETENTION
     Dosage: 40 MG
     Route: 048
  6. METOPROLOL [Concomitant]
     Indication: HYPERTENSION
     Route: 048
  7. RESTORIL [Concomitant]
  8. POTASSIUM CHLORIDE [Concomitant]
     Indication: ELECTROLYTE SUBSTITUTION THERAPY
     Route: 048

REACTIONS (3)
  - ODYNOPHAGIA [None]
  - DYSPEPSIA [None]
  - CHEST PAIN [None]
